FAERS Safety Report 8017908-0 (Version None)
Quarter: 2012Q1

REPORT INFORMATION
  Report Type: 
  Country: None (occurrence: None)
  Receive Date: 20120103
  Receipt Date: 20111222
  Transmission Date: 20120608
  Serious: Yes (Life-Threatening, Hospitalization)
  Sender: FDA-Public Use
  Company Number: US-JNJFOC-20111203321

PATIENT
  Sex: Female
  Weight: 51.26 kg

DRUGS (19)
  1. AMLODIPINE [Concomitant]
     Indication: HYPERTENSION
  2. DIGOXIN [Concomitant]
     Indication: ATRIAL FIBRILLATION
  3. KLOR-CON [Concomitant]
  4. PLAVIX [Concomitant]
     Indication: CORONARY ARTERY DISEASE
  5. PLAVIX [Concomitant]
     Indication: CEREBROVASCULAR ACCIDENT
  6. LOSARTAN POTASSIUM [Concomitant]
     Indication: HYPERTENSION
  7. SYNTHROID [Concomitant]
     Indication: HYPOTHYROIDISM
  8. LOPRESSOR [Concomitant]
     Indication: HYPERTENSION
  9. METHADONE HCL [Concomitant]
     Indication: PAIN MANAGEMENT
  10. ALLOPURINOL [Concomitant]
     Indication: GOUT
  11. BUMETANIDE [Concomitant]
     Indication: SWELLING
  12. PRADAXA [Suspect]
     Indication: ATRIAL FIBRILLATION
     Route: 048
     Dates: start: 20111107, end: 20111203
  13. XARELTO [Suspect]
     Indication: ATRIAL FIBRILLATION
     Route: 048
     Dates: start: 20111205, end: 20111206
  14. COLCHICINE [Concomitant]
     Indication: GOUT
  15. ISOSORBIDE MONONITRATE [Concomitant]
     Indication: CORONARY ARTERY DISEASE
  16. WELCHOL [Concomitant]
     Indication: HYPERLIPIDAEMIA
  17. CALCIUM ACETATE [Concomitant]
     Indication: MEDICAL DIET
  18. LOPID [Concomitant]
     Indication: HYPERLIPIDAEMIA
  19. LOVAZA [Concomitant]
     Indication: HYPERLIPIDAEMIA

REACTIONS (2)
  - HAEMOPTYSIS [None]
  - THROMBOSIS [None]
